FAERS Safety Report 9134111 (Version 8)
Quarter: 2013Q3

REPORT INFORMATION
  Report Type: Report from Study
  Country: US (occurrence: US)
  Receive Date: 20130304
  Receipt Date: 20130913
  Transmission Date: 20140515
  Serious: Yes (Other)
  Sender: FDA-Public Use
  Company Number: US-BIOGENIDEC-2013BI019907

PATIENT
  Age: 57 Year
  Sex: Female
  Weight: 63 kg

DRUGS (15)
  1. TYSABRI [Suspect]
     Indication: MULTIPLE SCLEROSIS
     Route: 042
     Dates: start: 20090423, end: 20130227
  2. AMPYRA [Concomitant]
     Route: 048
  3. OXYBUTYNIN [Concomitant]
     Indication: POLLAKIURIA
     Route: 048
  4. LISINOPRIL [Concomitant]
     Indication: HYPERTENSION
     Route: 048
  5. HCTZ [Concomitant]
     Indication: HYPERTENSION
     Route: 048
  6. BACLOFEN [Concomitant]
     Indication: MUSCLE SPASTICITY
     Route: 048
  7. TEGRETOL [Concomitant]
  8. SIMVASTATIN [Concomitant]
     Indication: HYPERCHOLESTEROLAEMIA
     Route: 048
  9. VITAMIN D [Concomitant]
     Indication: VITAMIN D DEFICIENCY
  10. CALCIUM [Concomitant]
  11. CARBAMAZEPINE [Concomitant]
  12. REQUIP [Concomitant]
     Route: 048
  13. TRAMADOL [Concomitant]
  14. VITAMIN B12 [Concomitant]
  15. VITAMIN C [Concomitant]

REACTIONS (2)
  - Breast cancer [Recovered/Resolved with Sequelae]
  - White blood cell count decreased [Not Recovered/Not Resolved]
